FAERS Safety Report 7423386-2 (Version None)
Quarter: 2011Q2

REPORT INFORMATION
  Report Type: 
  Country: None (occurrence: None)
  Receive Date: 20110419
  Receipt Date: 20110414
  Transmission Date: 20111010
  Serious: Yes (Life-Threatening, Hospitalization)
  Sender: FDA-Public Use
  Company Number: US-GENZYME-THYM-1002366

PATIENT
  Sex: Female
  Weight: 60.7 kg

DRUGS (3)
  1. METHYLPREDNISOLONE ACETATE [Concomitant]
     Indication: PROPHYLAXIS AGAINST TRANSPLANT REJECTION
  2. THYMOGLOBULIN [Suspect]
     Indication: PROPHYLAXIS AGAINST TRANSPLANT REJECTION
     Dosage: 100 MG, ONCE
     Route: 042
     Dates: start: 20080531, end: 20080531
  3. TACROLIMUS [Concomitant]
     Indication: PROPHYLAXIS AGAINST TRANSPLANT REJECTION

REACTIONS (2)
  - OSMOTIC DEMYELINATION SYNDROME [None]
  - ENTEROCOCCAL BACTERAEMIA [None]
